FAERS Safety Report 9068780 (Version 4)
Quarter: 2013Q2

REPORT INFORMATION
  Report Type: Spontaneous
  Country: BE (occurrence: None)
  Receive Date: 20130122
  Receipt Date: 20130412
  Transmission Date: 20140414
  Serious: Yes (Hospitalization)
  Sender: FDA-Public Use
  Company Number: ACO_33639_2013

PATIENT
  Age: 60 Year
  Sex: Male

DRUGS (14)
  1. FAMPRIDINE-SR [Suspect]
     Indication: MULTIPLE SCLEROSIS
     Route: 048
     Dates: start: 20120709
  2. URFADYN (NIFURTOINOL) [Concomitant]
  3. UROFYT [Concomitant]
  4. FURADANTINE (NITROFURANTOIN) [Concomitant]
  5. URI CRAN [Concomitant]
  6. COMBODART (DUTASTERIDE, TAMSULOSIN HYDROCHLORIDE) [Concomitant]
  7. FORZATEN (AMLODIPINE BESILATE, OLMESARTAN MEDOXOMIL) [Concomitant]
  8. TORENTAL (PENTOXIFYLLINE) [Concomitant]
  9. COLCHICINE (COLCHICINE) [Concomitant]
  10. ALLOPURINOL (ALLOPURINOL SODIUM) [Concomitant]
  11. CARDIOASPIRINE (ACETYLSALICYLIC ACID) [Concomitant]
  12. GLUCOPHAGE (METFORMIN HYDROCHLORIDE) [Concomitant]
  13. VICTOZA (LIRAGLUTIDE) [Concomitant]
  14. TRADONAL (TRAMADOL HYDROCHLORIDE) [Concomitant]

REACTIONS (3)
  - Stent removal [None]
  - Stent placement [None]
  - Medical device complication [None]
